FAERS Safety Report 9647740 (Version 3)
Quarter: 2013Q4

REPORT INFORMATION
  Report Type: Spontaneous
  Country: US (occurrence: US)
  Receive Date: 20131028
  Receipt Date: 20131231
  Transmission Date: 20140711
  Serious: No
  Sender: FDA-Public Use
  Company Number: US-009507513-1310USA009662

PATIENT
  Age: 63 Year
  Sex: Female
  Weight: 94.33 kg

DRUGS (8)
  1. VICTRELIS [Suspect]
     Dosage: 800 MG, TID (EVERY 7 - 9 HOURS), START ON WEEK 5
     Route: 048
     Dates: start: 201310
  2. PEGASYS [Suspect]
     Dosage: UNK, PROCLICK
     Route: 058
  3. RIBAPAK [Suspect]
     Dosage: 1200/DAY
     Route: 048
  4. SYNTHROID [Concomitant]
     Route: 048
  5. ACIPHEX [Concomitant]
     Route: 048
  6. CALCIUM (UNSPECIFIED) [Concomitant]
     Dosage: 500 TAB
     Route: 048
  7. VITAMIN D (UNSPECIFIED) [Concomitant]
     Route: 048
  8. POTASSIUM (UNSPECIFIED) [Concomitant]
     Dosage: TAB CHELATED
     Route: 048

REACTIONS (7)
  - White blood cell count decreased [Unknown]
  - Nausea [Unknown]
  - Anaemia [Unknown]
  - Eye pruritus [Unknown]
  - Abdominal discomfort [Unknown]
  - White blood cell count decreased [Unknown]
  - Dysgeusia [Unknown]
